FAERS Safety Report 23874234 (Version 1)
Quarter: 2024Q2

REPORT INFORMATION
  Report Type: Report from Study
  Country: US (occurrence: US)
  Receive Date: 20240520
  Receipt Date: 20240520
  Transmission Date: 20240716
  Serious: Yes (Other)
  Sender: FDA-Public Use
  Company Number: US-002147023-NVSC2024US047775

PATIENT
  Sex: Male

DRUGS (2)
  1. KESIMPTA [Suspect]
     Active Substance: OFATUMUMAB
     Indication: Multiple sclerosis
     Dosage: 20 MG, ONCE A WEEK FOR 3 WEEKS, SKIP WEEK 4, THEN START MONTHLY ON WEEK 5
     Route: 058
     Dates: start: 20240121
  2. KESIMPTA [Suspect]
     Active Substance: OFATUMUMAB
     Dosage: UNK, QMO (SECOND MONTHLY SHOT)
     Route: 065
     Dates: start: 202403

REACTIONS (5)
  - Multiple sclerosis relapse [Unknown]
  - Musculoskeletal disorder [Recovered/Resolved]
  - Muscle spasms [Unknown]
  - Hypoaesthesia [Unknown]
  - Facial discomfort [Unknown]
